FAERS Safety Report 7762674-7 (Version None)
Quarter: 2011Q3

REPORT INFORMATION
  Report Type: 
  Country: None (occurrence: None)
  Receive Date: 20110920
  Receipt Date: 20110913
  Transmission Date: 20111222
  Serious: Yes (Hospitalization)
  Sender: FDA-Public Use
  Company Number: SE-JNJFOC-20110905510

PATIENT
  Age: 29 Year
  Sex: Male

DRUGS (2)
  1. CONCERTA [Suspect]
     Indication: ATTENTION DEFICIT/HYPERACTIVITY DISORDER
     Dosage: 54 MG TWICE A DAY
     Route: 048
     Dates: start: 20090101, end: 20110601
  2. CONCERTA [Suspect]
     Dosage: 54 MG TWICE + 36 MG PER DAY
     Route: 048
     Dates: start: 20110601

REACTIONS (5)
  - HYPOACUSIS [None]
  - HEADACHE [None]
  - HYPOAESTHESIA [None]
  - PARESIS [None]
  - INCORRECT DOSE ADMINISTERED [None]
